FAERS Safety Report 6826498-7 (Version None)
Quarter: 2010Q3

REPORT INFORMATION
  Report Type: 
  Country: None (occurrence: None)
  Receive Date: 20100709
  Receipt Date: 20100706
  Transmission Date: 20110219
  Serious: Yes (Other)
  Sender: FDA-Public Use
  Company Number: CHPA2010US11089

PATIENT
  Age: 59 Year
  Sex: Female
  Weight: 74.83 kg

DRUGS (1)
  1. EXCEDRIN (MIGRAINE) [Suspect]
     Indication: MIGRAINE
     Dosage: 2 DF, QD
     Route: 048

REACTIONS (2)
  - DRUG INEFFECTIVE [None]
  - MIGRAINE [None]
